FAERS Safety Report 5883817-6 (Version None)
Quarter: 2008Q3

REPORT INFORMATION
  Report Type: 
  Country: None (occurrence: None)
  Receive Date: 20080915
  Receipt Date: 20080910
  Transmission Date: 20090109
  Serious: Yes (Other)
  Sender: FDA-Public Use
  Company Number: A0746321A

PATIENT
  Sex: Female

DRUGS (2)
  1. PAXIL [Suspect]
     Indication: DRUG USE FOR UNKNOWN INDICATION
     Dosage: 20MG UNKNOWN
     Route: 048
     Dates: start: 20050101, end: 20050101
  2. PAXIL CR [Suspect]
     Indication: DRUG USE FOR UNKNOWN INDICATION
     Route: 048

REACTIONS (7)
  - CRYING [None]
  - FEELING ABNORMAL [None]
  - INFLUENZA LIKE ILLNESS [None]
  - MALAISE [None]
  - PARAESTHESIA [None]
  - PERFORMANCE STATUS DECREASED [None]
  - WITHDRAWAL SYNDROME [None]
